FAERS Safety Report 7563284-7 (Version None)
Quarter: 2011Q2

REPORT INFORMATION
  Report Type: 
  Country: None (occurrence: None)
  Receive Date: 20110622
  Receipt Date: 20110620
  Transmission Date: 20111010
  Serious: Yes (Hospitalization)
  Sender: FDA-Public Use
  Company Number: US-SANOFI-AVENTIS-2011SA039094

PATIENT
  Age: 73 Year
  Sex: Female

DRUGS (4)
  1. LISINOPRIL [Concomitant]
  2. LORAZEPAM [Concomitant]
  3. PLAVIX [Suspect]
     Route: 065
     Dates: start: 20090101
  4. COUMADIN [Suspect]
     Route: 065

REACTIONS (2)
  - RECTAL HAEMORRHAGE [None]
  - ARTERIOVENOUS MALFORMATION [None]
